FAERS Safety Report 25507413 (Version 1)
Quarter: 2025Q3

REPORT INFORMATION
  Report Type: Spontaneous
  Country: US (occurrence: US)
  Receive Date: 20250703
  Receipt Date: 20250703
  Transmission Date: 20251021
  Serious: Yes (Hospitalization, Other)
  Sender: ABBVIE
  Company Number: US-ABBVIE-6349874

PATIENT
  Sex: Female

DRUGS (2)
  1. RINVOQ [Suspect]
     Active Substance: UPADACITINIB
     Indication: Paternal exposure timing unspecified
     Route: 064
  2. CAFFEINE [Concomitant]
     Active Substance: CAFFEINE
     Indication: Depressed level of consciousness

REACTIONS (4)
  - Bradycardia [Not Recovered/Not Resolved]
  - Premature baby [Recovered/Resolved]
  - Dyspnoea [Recovering/Resolving]
  - Foetal exposure during pregnancy [Unknown]

NARRATIVE: CASE EVENT DATE: 20250526
